FAERS Safety Report 25885793 (Version 1)
Quarter: 2025Q4

REPORT INFORMATION
  Report Type: Spontaneous
  Country: US (occurrence: US)
  Receive Date: 20251006
  Receipt Date: 20251006
  Transmission Date: 20260118
  Serious: No
  Sender: GLAXOSMITHKLINE
  Company Number: US-GSK-US2025AMR115817

PATIENT
  Age: 51 Year
  Sex: Female

DRUGS (2)
  1. NUCALA [Suspect]
     Active Substance: MEPOLIZUMAB
     Indication: Nasal polyps
     Dosage: 100 MG, WE
     Dates: start: 202505
  2. NUCALA [Suspect]
     Active Substance: MEPOLIZUMAB
     Indication: Idiopathic urticaria

REACTIONS (2)
  - Nasal polyps [Unknown]
  - Product use in unapproved indication [Unknown]

NARRATIVE: CASE EVENT DATE: 20250501
